FAERS Safety Report 11847797 (Version 1)
Quarter: 2015Q4

REPORT INFORMATION
  Report Type: Spontaneous
  Country: BR (occurrence: BR)
  Receive Date: 20151217
  Receipt Date: 20151217
  Transmission Date: 20160305
  Serious: Yes (Other)
  Sender: FDA-Public Use
  Company Number: BR-PFIZER INC-2015443456

PATIENT
  Sex: Female

DRUGS (2)
  1. GEODON [Suspect]
     Active Substance: ZIPRASIDONE HYDROCHLORIDE\ZIPRASIDONE MESYLATE
     Dosage: 40 MG, UNK
     Dates: start: 2014
  2. GEODON [Suspect]
     Active Substance: ZIPRASIDONE HYDROCHLORIDE\ZIPRASIDONE MESYLATE
     Dosage: 80 MG, UNK
     Dates: start: 1995

REACTIONS (6)
  - Lacrimation increased [Not Recovered/Not Resolved]
  - Diplopia [Recovering/Resolving]
  - Visual acuity reduced [Not Recovered/Not Resolved]
  - Muscle spasms [Unknown]
  - Abortion spontaneous [Unknown]
  - Activities of daily living impaired [Unknown]

NARRATIVE: CASE EVENT DATE: 2014
